FAERS Safety Report 18125927 (Version 1)
Quarter: 2020Q3

REPORT INFORMATION
  Report Type: Spontaneous
  Country: US (occurrence: US)
  Receive Date: 20200807
  Receipt Date: 20200807
  Transmission Date: 20201103
  Serious: No
  Sender: FDA-Public Use
  Company Number: US-PURDUE-USA-2020-0149884

PATIENT
  Age: 55 Year
  Sex: Male

DRUGS (1)
  1. BUPRENORPHINE TRANSDERMAL PATCH (SIMILAR TO NDA 21?306) [Suspect]
     Active Substance: BUPRENORPHINE
     Indication: PAIN MANAGEMENT
     Dosage: 20 MCG/HR, WEEKLY
     Route: 062

REACTIONS (6)
  - Pain [Not Recovered/Not Resolved]
  - Application site pustules [Not Recovered/Not Resolved]
  - Application site burn [Not Recovered/Not Resolved]
  - Application site vesicles [Not Recovered/Not Resolved]
  - Blister infected [Not Recovered/Not Resolved]
  - Product adhesion issue [Not Recovered/Not Resolved]

NARRATIVE: CASE EVENT DATE: 202001
